FAERS Safety Report 19886870 (Version 5)
Quarter: 2022Q1

REPORT INFORMATION
  Report Type: Spontaneous
  Country: US (occurrence: US)
  Receive Date: 20210928
  Receipt Date: 20220131
  Transmission Date: 20220424
  Serious: Yes (Other)
  Sender: FDA-Public Use
  Company Number: US-JNJFOC-20210941305

PATIENT
  Age: 68 Year
  Sex: Female

DRUGS (4)
  1. ELMIRON [Suspect]
     Active Substance: PENTOSAN POLYSULFATE SODIUM
     Indication: Cystitis interstitial
     Route: 048
     Dates: start: 200406, end: 201610
  2. LODINE [Concomitant]
     Active Substance: ETODOLAC
     Indication: Fibromyalgia
     Dates: start: 1999
  3. ETODOLAC [Concomitant]
     Active Substance: ETODOLAC
     Indication: Back pain
     Dates: start: 2008
  4. OMEPRAZOLE [Concomitant]
     Active Substance: OMEPRAZOLE
     Indication: Ulcer
     Dates: start: 2011

REACTIONS (2)
  - Age-related macular degeneration [Not Recovered/Not Resolved]
  - Maculopathy [Not Recovered/Not Resolved]

NARRATIVE: CASE EVENT DATE: 20200801
